FAERS Safety Report 4923292-9 (Version None)
Quarter: 2006Q1

REPORT INFORMATION
  Report Type: 
  Country: None (occurrence: None)
  Receive Date: 20060223
  Receipt Date: 20060223
  Transmission Date: 20060701
  Serious: Yes (Hospitalization)
  Sender: FDA-Public Use
  Company Number: None

PATIENT
  Sex: Male

DRUGS (19)
  1. LISINOPRIL [Suspect]
     Indication: CARDIAC FAILURE
     Dosage: 20 MG DAILY PO
     Route: 048
  2. SPIRONOLACTONE [Suspect]
     Indication: CARDIAC FAILURE
     Dosage: 50 MG BID PO
     Route: 048
  3. DIGOXIN [Concomitant]
  4. GLYBURIDE [Concomitant]
  5. AMITRIPTYLINE HCL [Concomitant]
  6. CARVEDILOL [Concomitant]
  7. COMBIVENT [Concomitant]
  8. SIMVASTATIN [Concomitant]
  9. FORMOTEROL [Concomitant]
  10. HYDROCODONE BITARTRATE + ACETAMINOPHEN [Concomitant]
  11. HYDROXYCHLOROQUINE SULFATE [Concomitant]
  12. LEFLUNOMIDE [Concomitant]
  13. FUROSEMIDE [Concomitant]
  14. INSULIN [Concomitant]
  15. LISINOPRIL [Concomitant]
  16. OMEPRAZOLE [Concomitant]
  17. PREDNISONE [Concomitant]
  18. WARFARIN SODIUM [Concomitant]
  19. OXYCODONE AND ACETAMINOPHEN [Concomitant]

REACTIONS (3)
  - MENTAL STATUS CHANGES [None]
  - RENAL FAILURE ACUTE [None]
  - THERAPEUTIC AGENT TOXICITY [None]
